FAERS Safety Report 6538505-X (Version None)
Quarter: 2010Q1

REPORT INFORMATION
  Report Type: 
  Country: None (occurrence: None)
  Receive Date: 20100114
  Receipt Date: 20100104
  Transmission Date: 20100710
  Serious: Yes (Death)
  Sender: FDA-Public Use
  Company Number: PH-BAXTER-2010BH000750

PATIENT
  Age: 65 Year
  Sex: Male

DRUGS (1)
  1. DIANEAL [Suspect]
     Indication: PERITONEAL DIALYSIS
     Route: 033
     Dates: start: 20091022, end: 20091224

REACTIONS (3)
  - DIABETES MELLITUS [None]
  - DIABETIC END STAGE RENAL DISEASE [None]
  - HYPERTENSION [None]
